FAERS Safety Report 17173432 (Version 1)
Quarter: 2019Q4

REPORT INFORMATION
  Report Type: Spontaneous
  Country: US (occurrence: US)
  Receive Date: 20191218
  Receipt Date: 20191218
  Transmission Date: 20200122
  Serious: Yes (Death)
  Sender: FDA-Public Use
  Company Number: None

PATIENT
  Age: 66 Year
  Sex: Male
  Weight: 104 kg

DRUGS (1)
  1. HEPARIN [Suspect]
     Active Substance: HEPARIN SODIUM
     Indication: PERCUTANEOUS CORONARY INTERVENTION
     Dosage: ?          OTHER FREQUENCY:ONCE AS NEEDED;?
     Route: 040

REACTIONS (7)
  - Product label issue [None]
  - Chest pain [None]
  - Cardiac procedure complication [None]
  - Post procedural complication [None]
  - Coagulation time [None]
  - Vascular stent occlusion [None]
  - Anticoagulation drug level below therapeutic [None]

NARRATIVE: CASE EVENT DATE: 20191115
